FAERS Safety Report 6322843-X (Version None)
Quarter: 2009Q3

REPORT INFORMATION
  Report Type: 
  Country: None (occurrence: None)
  Receive Date: 20090824
  Receipt Date: 20090817
  Transmission Date: 20100115
  Serious: Yes (Hospitalization)
  Sender: FDA-Public Use
  Company Number: PHHY2009DE34961

PATIENT
  Sex: Female

DRUGS (5)
  1. ZOMETA [Suspect]
     Indication: METASTASES TO BONE
     Dosage: 4 MG EVERY 4 WEEKS
     Route: 042
     Dates: start: 20070801
  2. ZOMETA [Suspect]
     Indication: BREAST CANCER
  3. ZOMETA [Suspect]
     Indication: METASTASES TO LUNG
  4. ZOMETA [Suspect]
     Indication: METASTASES TO CENTRAL NERVOUS SYSTEM
  5. XELODA [Concomitant]

REACTIONS (11)
  - AMAUROSIS [None]
  - APHASIA [None]
  - DYSPHAGIA [None]
  - ENCEPHALITIS HERPES [None]
  - HEMIPARESIS [None]
  - HYPERAESTHESIA [None]
  - LOSS OF CONSCIOUSNESS [None]
  - MONOPARESIS [None]
  - PYREXIA [None]
  - SPEECH DISORDER [None]
  - VISUAL FIELD DEFECT [None]
